FAERS Safety Report 11666762 (Version 1)
Quarter: 2015Q4

REPORT INFORMATION
  Report Type: Report from Study
  Country: CA (occurrence: CA)
  Receive Date: 20151027
  Receipt Date: 20151027
  Transmission Date: 20160304
  Serious: Yes (Other)
  Sender: FDA-Public Use
  Company Number: CA-JNJFOC-20151014097

PATIENT
  Sex: Female
  Weight: 74.5 kg

DRUGS (1)
  1. REMICADE [Suspect]
     Active Substance: INFLIXIMAB
     Indication: CROHN^S DISEASE
     Route: 042

REACTIONS (3)
  - Oropharyngeal pain [Recovered/Resolved]
  - Fistula [Recovered/Resolved]
  - Rhinorrhoea [Recovered/Resolved]
